FAERS Safety Report 19850360 (Version 2)
Quarter: 2021Q4

REPORT INFORMATION
  Report Type: Spontaneous
  Country: GB (occurrence: GB)
  Receive Date: 20210918
  Receipt Date: 20211012
  Transmission Date: 20220303
  Serious: Yes (Other)
  Sender: FDA-Public Use
  Company Number: GB-AMGEN-GBRSP2021139358

PATIENT
  Age: 29 Year
  Sex: Female
  Weight: 79 kg

DRUGS (3)
  1. ADALIMUMAB [Suspect]
     Active Substance: ADALIMUMAB
     Indication: Psoriasis
     Dosage: 40 MILLIGRAM, Q2WK
     Route: 065
     Dates: start: 20190724, end: 20210331
  2. OMEPRAZOLE [Concomitant]
     Active Substance: OMEPRAZOLE
     Dosage: UNK
     Dates: start: 20201221
  3. MODERNA COVID-19 VACCINE [Concomitant]
     Active Substance: CX-024414
     Dosage: UNK
     Dates: start: 20210424, end: 20210717

REACTIONS (1)
  - Maternal exposure during pregnancy [Recovered/Resolved]
